FAERS Safety Report 12756495 (Version 1)
Quarter: 2016Q3

REPORT INFORMATION
  Report Type: Report from Study
  Country: US (occurrence: US)
  Receive Date: 20160917
  Receipt Date: 20160917
  Transmission Date: 20161109
  Serious: No
  Sender: FDA-Public Use
  Company Number: PHEH2016US023332

PATIENT
  Sex: Female
  Weight: 80.27 kg

DRUGS (1)
  1. ENTRESTO [Suspect]
     Active Substance: SACUBITRIL\VALSARTAN
     Indication: PRODUCT USED FOR UNKNOWN INDICATION
     Route: 065

REACTIONS (5)
  - Heart rate decreased [Unknown]
  - Decreased appetite [Unknown]
  - Visual acuity reduced [Unknown]
  - Cardiac disorder [Unknown]
  - Weight decreased [Unknown]
